FAERS Safety Report 8276090-5 (Version None)
Quarter: 2012Q2

REPORT INFORMATION
  Report Type: 
  Country: None (occurrence: None)
  Receive Date: 20120405
  Receipt Date: 20120320
  Transmission Date: 20120825
  Serious: Yes (Other)
  Sender: FDA-Public Use
  Company Number: DSA_56007_2012

PATIENT
  Sex: Female

DRUGS (43)
  1. PREDNISONE TAB [Concomitant]
  2. BENADRYL EXPECTORANS [Concomitant]
  3. TYLENOL REGULAR [Concomitant]
  4. COMPAZINE [Concomitant]
  5. PHENERGAN HCL [Concomitant]
  6. IBUPROFEN (ADVIL) [Concomitant]
  7. NYSTATIN + TRIAMCINOLONE ACETONIDE [Concomitant]
  8. AMOXICILLIN [Concomitant]
  9. TERAZOL 1 [Concomitant]
  10. RITUXAN [Concomitant]
  11. LOPROX [Concomitant]
  12. CYTOXAN [Concomitant]
  13. DECADRON [Concomitant]
  14. ZANTAC [Concomitant]
  15. HEPARIN [Concomitant]
  16. COLACE [Concomitant]
  17. RITUXIMAB [Concomitant]
  18. VALTREX [Concomitant]
  19. VINCRISTINE [Concomitant]
  20. ANAPROX [Concomitant]
  21. TERCONAZOLE [Concomitant]
  22. METROGEL-VAGINAL [Concomitant]
  23. ZITHROMAX [Concomitant]
  24. MOTRIN [Concomitant]
  25. CIPROFLOXACIN HCL [Concomitant]
  26. PROTONIX [Concomitant]
  27. ALLOPURINOL [Concomitant]
  28. AMBIEN [Concomitant]
  29. VERAMYST [Concomitant]
  30. ORTHO TRI-CYCLEN [Concomitant]
  31. PERCOCET [Concomitant]
  32. MAGNESIUM HYDROXIDE TAB [Concomitant]
  33. ELIDEL [Suspect]
     Indication: DERMATITIS
     Dosage: (DF TOPICAL)
     Route: 061
     Dates: start: 20030101
  34. ADRIAMYCIN PFS [Concomitant]
  35. DOXYCYCLINE [Concomitant]
  36. CEPHALEXIN [Concomitant]
  37. AZITHROMYCIN [Concomitant]
  38. MORPHINE [Concomitant]
  39. KLONOPIN [Concomitant]
  40. CLONAZEPAM [Concomitant]
  41. METRONIDAZOLE [Concomitant]
  42. PROMETHAZINE [Concomitant]
  43. CIPROFLOXACIN HYDROCHLORIDE [Concomitant]

REACTIONS (29)
  - GASTRITIS [None]
  - PANIC ATTACK [None]
  - DEEP VEIN THROMBOSIS [None]
  - ARTHROPATHY [None]
  - DYSPEPSIA [None]
  - CELLULITIS [None]
  - ANAEMIA [None]
  - INSOMNIA [None]
  - PHARYNGITIS [None]
  - ORAL PAIN [None]
  - ABDOMINAL DISCOMFORT [None]
  - HERPES SIMPLEX [None]
  - PRIMARY MEDIASTINAL LARGE B-CELL LYMPHOMA STAGE II [None]
  - CONJUNCTIVITIS VIRAL [None]
  - NAUSEA [None]
  - VOMITING [None]
  - KELOID SCAR [None]
  - FOOD POISONING [None]
  - UPPER RESPIRATORY TRACT INFECTION [None]
  - DIZZINESS [None]
  - STRESS ULCER [None]
  - URINARY TRACT INFECTION [None]
  - BLOOD LACTATE DEHYDROGENASE INCREASED [None]
  - CHLAMYDIAL INFECTION [None]
  - ABDOMINAL PAIN UPPER [None]
  - HERPES ZOSTER [None]
  - ASTHENIA [None]
  - HYPOPHAGIA [None]
  - TOOTH DISORDER [None]
